FAERS Safety Report 5244166-2 (Version None)
Quarter: 2007Q1

REPORT INFORMATION
  Report Type: 
  Country: None (occurrence: None)
  Receive Date: 20070222
  Receipt Date: 20070216
  Transmission Date: 20070707
  Serious: Yes (Death, Hospitalization)
  Sender: FDA-Public Use
  Company Number: US-GLAXOSMITHKLINE-A0592528A

PATIENT
  Age: 65 Year
  Sex: Male
  Weight: 65.9 kg

DRUGS (6)
  1. PAXIL [Suspect]
     Indication: DEPRESSION
     Dosage: 40MGD UNKNOWN
     Route: 048
     Dates: start: 20020121
  2. AMBIEN [Concomitant]
  3. ASPIRIN [Concomitant]
  4. COUMADIN [Concomitant]
  5. ZOCOR [Concomitant]
  6. ATENOLOL [Concomitant]

REACTIONS (12)
  - ANHEDONIA [None]
  - ANXIETY [None]
  - COMPLETED SUICIDE [None]
  - DEPRESSION [None]
  - DIZZINESS [None]
  - DYSPNOEA [None]
  - HYPERHIDROSIS [None]
  - LETHARGY [None]
  - SUICIDAL IDEATION [None]
  - SUICIDE ATTEMPT [None]
  - THINKING ABNORMAL [None]
  - TREMOR [None]
